FAERS Safety Report 22135857 (Version 1)
Quarter: 2023Q1

REPORT INFORMATION
  Report Type: Report from Study
  Country: US (occurrence: US)
  Receive Date: 20230324
  Receipt Date: 20230324
  Transmission Date: 20230418
  Serious: No
  Sender: FDA-Public Use
  Company Number: US-INCYTE CORPORATION-2020IN006886

PATIENT

DRUGS (1)
  1. PEMIGATINIB [Suspect]
     Active Substance: PEMIGATINIB
     Indication: Cholangiocarcinoma
     Dosage: 13.5 MILLIGRAM, QAM (AT 9AM) WITHOUT FOOD DAILY 14 DAYS ON/7 DAYS OFF
     Route: 048
     Dates: start: 20200701

REACTIONS (7)
  - Breast ulceration [Unknown]
  - Impaired healing [Unknown]
  - Abscess [Unknown]
  - Hypogeusia [Unknown]
  - Cutaneous calcification [Unknown]
  - Fatigue [Unknown]
  - Hyperphosphataemia [Unknown]

NARRATIVE: CASE EVENT DATE: 20200701
